FAERS Safety Report 4968732-4 (Version None)
Quarter: 2006Q2

REPORT INFORMATION
  Report Type: 
  Country: None (occurrence: None)
  Receive Date: 20060405
  Receipt Date: 20060324
  Transmission Date: 20061013
  Serious: Yes (Hospitalization)
  Sender: FDA-Public Use
  Company Number: 2006016872

PATIENT
  Age: 69 Year
  Sex: Male
  Weight: 64 kg

DRUGS (5)
  1. HALCION [Suspect]
     Indication: INSOMNIA
     Dosage: 0.125 MG (0.125 MG, 1 IN 1D), ORAL
     Route: 048
     Dates: start: 19910101, end: 20060206
  2. KERLONE [Concomitant]
  3. ADALAT [Concomitant]
  4. ALPRAZOLAM [Concomitant]
  5. METHYCOBAL (MECOBALAMIN) [Concomitant]

REACTIONS (1)
  - OPTIC NEURITIS [None]
